FAERS Safety Report 9735730 (Version 1)
Quarter: 2013Q4

REPORT INFORMATION
  Report Type: Spontaneous
  Country: FR (occurrence: FR)
  Receive Date: 20131206
  Receipt Date: 20131206
  Transmission Date: 20140711
  Serious: Yes (Hospitalization)
  Sender: FDA-Public Use
  Company Number: FR-GLAXOSMITHKLINE-B0948038A

PATIENT
  Age: 37 Year
  Sex: Female

DRUGS (10)
  1. BENLYSTA [Suspect]
     Indication: SYSTEMIC LUPUS ERYTHEMATOSUS
     Dosage: 600MG CYCLIC
     Route: 042
     Dates: start: 20131015
  2. DISULONE [Concomitant]
     Dosage: 100MG PER DAY
     Route: 065
  3. DIFFU K [Concomitant]
     Route: 065
  4. CACIT VITAMINE D3 [Concomitant]
     Route: 065
  5. CORTANCYL [Concomitant]
     Dosage: 10MG PER DAY
     Route: 065
  6. KARDEGIC [Concomitant]
     Route: 065
  7. PLAQUENIL [Concomitant]
     Route: 065
  8. METHOTREXATE [Concomitant]
     Route: 065
  9. METHOTREXATE [Concomitant]
     Route: 065
  10. FOLIC ACID [Concomitant]
     Route: 065

REACTIONS (3)
  - Rash erythematous [Recovered/Resolved]
  - Papule [Recovered/Resolved]
  - Urticaria [Recovered/Resolved]
